FAERS Safety Report 13144175 (Version 9)
Quarter: 2024Q2

REPORT INFORMATION
  Report Type: Report from Study
  Country: CR (occurrence: CR)
  Receive Date: 20170124
  Receipt Date: 20240527
  Transmission Date: 20240716
  Serious: Yes (Other)
  Sender: FDA-Public Use
  Company Number: PHHY2017CR006114

PATIENT
  Sex: Female
  Weight: 73 kg

DRUGS (8)
  1. EXFORGE HCT [Suspect]
     Active Substance: AMLODIPINE BESYLATE\HYDROCHLOROTHIAZIDE\VALSARTAN
     Indication: Hypertension
     Dosage: 1 DOSAGE FORM, QD (10/320/2 5MG)
     Route: 048
     Dates: start: 2008
  2. EXFORGE HCT [Suspect]
     Active Substance: AMLODIPINE BESYLATE\HYDROCHLOROTHIAZIDE\VALSARTAN
     Indication: Arrhythmia
     Dosage: 1 DF (AMLODIPINE 10 MG, HYDROCHLOROTHIAZIDE 25 MG, VALSARTAN 320 MG), QD (MORNING)
     Route: 065
     Dates: start: 2010
  3. EXFORGE HCT [Suspect]
     Active Substance: AMLODIPINE BESYLATE\HYDROCHLOROTHIAZIDE\VALSARTAN
     Dosage: 5/160/12.5 MG,APPROXIMATELY END OF OCTOBER AND BEGINNING OF NOVEMBER 2021
     Route: 065
     Dates: start: 202109, end: 20211025
  4. EXFORGE HCT [Suspect]
     Active Substance: AMLODIPINE BESYLATE\HYDROCHLOROTHIAZIDE\VALSARTAN
     Dosage: 1 DF (AMLODIPINE 10 MG, HYDROCHLOROTHIAZIDE 12.5 MG, VALSARTAN 160 MG)
     Route: 065
  5. EXFORGE HCT [Suspect]
     Active Substance: AMLODIPINE BESYLATE\HYDROCHLOROTHIAZIDE\VALSARTAN
     Dosage: UNK 10/320/25 MG
     Route: 065
  6. EXFORGE HCT [Suspect]
     Active Substance: AMLODIPINE BESYLATE\HYDROCHLOROTHIAZIDE\VALSARTAN
     Dosage: UNK 5/160/12.5 MG
     Route: 065
  7. EXFORGE HCT [Suspect]
     Active Substance: AMLODIPINE BESYLATE\HYDROCHLOROTHIAZIDE\VALSARTAN
     Dosage: 1 DOSAGE FORM, QD UNK, 10/320/25 MG (IN THE MORNING)
     Route: 065
     Dates: start: 2010
  8. CARVEDILOL [Suspect]
     Active Substance: CARVEDILOL
     Indication: Arrhythmia
     Dosage: UNK
     Route: 065

REACTIONS (16)
  - Cardiac failure [Unknown]
  - Myocardial infarction [Recovering/Resolving]
  - Arrhythmia [Recovering/Resolving]
  - Heart rate decreased [Recovering/Resolving]
  - Ear pain [Recovering/Resolving]
  - Deafness [Recovering/Resolving]
  - Mastication disorder [Recovering/Resolving]
  - Feeling abnormal [Recovering/Resolving]
  - Nervousness [Unknown]
  - Fall [Unknown]
  - Hypotension [Not Recovered/Not Resolved]
  - Blood pressure increased [Unknown]
  - Weight decreased [Not Recovered/Not Resolved]
  - Blood glucose increased [Recovered/Resolved]
  - Wrong technique in product usage process [Unknown]
  - Product use in unapproved indication [Unknown]

NARRATIVE: CASE EVENT DATE: 20160101
